FAERS Safety Report 7731142-0 (Version None)
Quarter: 2011Q3

REPORT INFORMATION
  Report Type: 
  Country: None (occurrence: None)
  Receive Date: 20110906
  Receipt Date: 20110906
  Transmission Date: 20111222
  Serious: Yes (Hospitalization)
  Sender: FDA-Public Use
  Company Number: None

PATIENT
  Age: 19 Year
  Sex: Female
  Weight: 71.214 kg

DRUGS (1)
  1. LAMICTAL [Suspect]
     Indication: BIPOLAR DISORDER
     Dosage: STARTER KIT
     Route: 048
     Dates: start: 20110815, end: 20110830

REACTIONS (14)
  - SKIN EXFOLIATION [None]
  - PYREXIA [None]
  - VIRAL INFECTION [None]
  - DRY SKIN [None]
  - RASH [None]
  - DIZZINESS [None]
  - DYSPNOEA [None]
  - DEHYDRATION [None]
  - HEADACHE [None]
  - MUSCULOSKELETAL STIFFNESS [None]
  - VOMITING [None]
  - DYSARTHRIA [None]
  - DRUG RASH WITH EOSINOPHILIA AND SYSTEMIC SYMPTOMS [None]
  - STOMATITIS [None]
